FAERS Safety Report 10045532 (Version 1)
Quarter: 2014Q1

REPORT INFORMATION
  Report Type: Spontaneous
  Country: US (occurrence: US)
  Receive Date: 20140328
  Receipt Date: 20140328
  Transmission Date: 20141002
  Serious: Yes (Hospitalization, Disabling, Other)
  Sender: FDA-Public Use
  Company Number: US-ABBVIE-14P-163-1213915-00

PATIENT
  Sex: Female

DRUGS (2)
  1. LUPRON DEPOT [Suspect]
     Indication: CYST
     Dates: start: 20120315
  2. LUPRON DEPOT [Suspect]
     Indication: MENSTRUAL DISORDER

REACTIONS (20)
  - Burning sensation [Unknown]
  - Pain [Unknown]
  - Vasodilatation [Unknown]
  - Vomiting [Unknown]
  - Injury [Unknown]
  - Vision blurred [Unknown]
  - Tooth loss [Unknown]
  - Depression [Unknown]
  - Asthenia [Unknown]
  - Feeling abnormal [Unknown]
  - Pain [Unknown]
  - Tension [Unknown]
  - Emotional distress [Unknown]
  - Pain in jaw [Unknown]
  - Spinal pain [Unknown]
  - Breast pain [Unknown]
  - Pain in extremity [Unknown]
  - Toothache [Unknown]
  - Dyspnoea [Unknown]
  - Pain [Unknown]
